FAERS Safety Report 14509886 (Version 1)
Quarter: 2018Q1

REPORT INFORMATION
  Report Type: Spontaneous
  Country: US (occurrence: US)
  Receive Date: 20180207
  Receipt Date: 20180207
  Transmission Date: 20180509
  Serious: Yes (Hospitalization)
  Sender: FDA-Public Use
  Company Number: None

PATIENT
  Age: 68 Year
  Sex: Male
  Weight: 85.46 kg

DRUGS (1)
  1. SULFAMETHOXAZOLE/TRIMETHOPRIM [Suspect]
     Active Substance: SULFAMETHOXAZOLE\TRIMETHOPRIM
     Indication: SUBCUTANEOUS ABSCESS
     Dosage: 800/160 MG BID PO
     Route: 048
     Dates: start: 20171023, end: 20171102

REACTIONS (6)
  - Jaundice [None]
  - Blood lactate dehydrogenase increased [None]
  - Tinnitus [None]
  - Liver function test increased [None]
  - Subcutaneous abscess [None]
  - Chromaturia [None]

NARRATIVE: CASE EVENT DATE: 20171102
